FAERS Safety Report 14818659 (Version 3)
Quarter: 2018Q3

REPORT INFORMATION
  Report Type: Spontaneous
  Country: US (occurrence: US)
  Receive Date: 20180427
  Receipt Date: 20180731
  Transmission Date: 20181010
  Serious: Yes (Other)
  Sender: FDA-Public Use
  Company Number: US-PFIZER INC-2018169425

PATIENT
  Age: 93 Year
  Sex: Female
  Weight: 63.99 kg

DRUGS (16)
  1. NORVASC [Suspect]
     Active Substance: AMLODIPINE BESYLATE
     Indication: HYPERTENSION
  2. GLUCOSAMINE HYDROCHLORIDE [Concomitant]
     Active Substance: GLUCOSAMINE HYDROCHLORIDE
     Dosage: UNK UNK, 1X/DAY (HS)
     Route: 048
  3. IBUPROFEN. [Concomitant]
     Active Substance: IBUPROFEN
     Dosage: 200 MG, 1X/DAY (QPM)
     Route: 048
  4. ALFALFA [Concomitant]
     Active Substance: ALFALFA
     Dosage: 1300 MG, ALTERNATE DAY [EVERY OTHER MORNING]
     Route: 048
  5. SYNTHROID [Concomitant]
     Active Substance: LEVOTHYROXINE SODIUM
     Dosage: 75 UG, 1X/DAY, ON SAT AND SUN
  6. VITAMIN C [Concomitant]
     Active Substance: ASCORBIC ACID
     Indication: NASOPHARYNGITIS
     Dosage: 1000 MG, AS NEEDED (DAILY)
     Route: 048
  7. FISH OIL [Concomitant]
     Active Substance: FISH OIL
     Dosage: 1 DF, 1X/DAY (QAM)
     Route: 048
  8. RED YEAST RICE [Concomitant]
     Active Substance: DIETARY SUPPLEMENT
     Dosage: 1200 MG, 1X/DAY (QAM)
     Route: 048
  9. NORVASC [Suspect]
     Active Substance: AMLODIPINE BESYLATE
     Indication: BLOOD PRESSURE ABNORMAL
     Dosage: 5 MG, DAILY
     Route: 048
     Dates: start: 2015, end: 20180404
  10. SYNTHROID [Concomitant]
     Active Substance: LEVOTHYROXINE SODIUM
     Indication: THYROID DISORDER
     Dosage: 50 UG, 1X/DAY, MON?FRI
  11. VITAMIN D3 [Concomitant]
     Active Substance: CHOLECALCIFEROL
     Indication: SUPPLEMENTATION THERAPY
     Dosage: 2000 IU, 2X/WEEK
     Route: 048
  12. ASPIRIN. [Concomitant]
     Active Substance: ASPIRIN
     Dosage: UNK, DAILY
     Route: 048
  13. LYSINE [Concomitant]
     Active Substance: LYSINE
     Indication: ORAL HERPES
     Dosage: 1000 MG, AS NEEDED (DAILY)
  14. MELATONIN [Concomitant]
     Active Substance: MELATONIN
     Indication: INSOMNIA
     Dosage: 3 MG, AS NEEDED (HS)
     Route: 048
  15. LUTEIN [Concomitant]
     Active Substance: LUTEIN
     Indication: MACULAR DEGENERATION
     Dosage: 40 MG, DAILY
     Route: 048
  16. MELATONIN [Concomitant]
     Active Substance: MELATONIN
     Dosage: 5 MG, 1X/DAY (AT NIGHT)

REACTIONS (12)
  - Burning sensation [Unknown]
  - Drug hypersensitivity [Unknown]
  - Urge incontinence [Recovering/Resolving]
  - Osteoarthritis [Unknown]
  - Lymphadenopathy [Unknown]
  - Carpal tunnel syndrome [Unknown]
  - Hypoacusis [Unknown]
  - Grief reaction [Unknown]
  - Carotid artery stenosis [Unknown]
  - Rash pruritic [Recovering/Resolving]
  - Rash macular [Recovering/Resolving]
  - Hypothyroidism [Unknown]

NARRATIVE: CASE EVENT DATE: 20180315
